FAERS Safety Report 4969395-4 (Version None)
Quarter: 2006Q2

REPORT INFORMATION
  Report Type: 
  Country: None (occurrence: None)
  Receive Date: 20060405
  Receipt Date: 20060322
  Transmission Date: 20061013
  Serious: Yes (Hospitalization, Other)
  Sender: FDA-Public Use
  Company Number: 2006US-01876

PATIENT
  Age: 75 Year
  Sex: Male

DRUGS (2)
  1. AMOXICILLIN + CLAVULANATE POTASSIUM [Suspect]
  2. WARFARIN [Concomitant]

REACTIONS (6)
  - ABDOMINAL PAIN LOWER [None]
  - ABDOMINAL WALL MASS [None]
  - ANORECTAL DISORDER [None]
  - CONTUSION [None]
  - HAEMATOMA [None]
  - INTERNATIONAL NORMALISED RATIO INCREASED [None]
